FAERS Safety Report 6576467-X (Version None)
Quarter: 2010Q1

REPORT INFORMATION
  Report Type: 
  Country: None (occurrence: None)
  Receive Date: 20100210
  Receipt Date: 20091112
  Transmission Date: 20100710
  Serious: No
  Sender: FDA-Public Use
  Company Number: A0815384A

PATIENT
  Age: 82 Year
  Sex: Male

DRUGS (12)
  1. ALTABAX [Suspect]
     Dosage: 1APP SINGLE DOSE
     Route: 061
     Dates: start: 20090909, end: 20090909
  2. DOXAZOSIN MESYLATE [Concomitant]
  3. FUROSEMIDE [Concomitant]
  4. SYNTHROID [Concomitant]
  5. COREG [Concomitant]
  6. LIPITOR [Concomitant]
  7. ALTACE [Concomitant]
  8. AMIODARONE HYDROCHLORIDE [Concomitant]
  9. WARFARIN SODIUM [Concomitant]
  10. AMOXICILLIN [Concomitant]
  11. PRILOSEC [Concomitant]
  12. LASIX [Concomitant]

REACTIONS (1)
  - APPLICATION SITE PAIN [None]
